FAERS Safety Report 9292853 (Version 1)
Quarter: 2013Q1

REPORT INFORMATION
  Report Type: Spontaneous
  Country: US (occurrence: None)
  Receive Date: 20121214
  Receipt Date: 20121214
  Transmission Date: 20140127
  Serious: Yes (Other)
  Sender: FDA-Public Use
  Company Number: 1205USA01744

PATIENT
  Age: 60 Year
  Sex: Male

DRUGS (3)
  1. JANUVIA [Suspect]
     Indication: HYPERGLYCAEMIA
     Route: 048
     Dates: start: 201203, end: 20120425
  2. PRINIVIL ( LISINOPRIL) TABLET [Concomitant]
  3. NORVASC ( AMLODIPINE BESYLATE) [Concomitant]

REACTIONS (1)
  - Renal failure acute [None]
